FAERS Safety Report 20576457 (Version 4)
Quarter: 2022Q3

REPORT INFORMATION
  Report Type: Spontaneous
  Country: JP (occurrence: JP)
  Receive Date: 20220310
  Receipt Date: 20220715
  Transmission Date: 20221027
  Serious: No
  Sender: FDA-Public Use
  Company Number: JP-GLAXOSMITHKLINE-JP2022JPN038506

PATIENT

DRUGS (12)
  1. SOTROVIMAB [Suspect]
     Active Substance: SOTROVIMAB
     Indication: COVID-19
     Dosage: 500 MG/100 ML/30 MIN, QD
     Dates: start: 20220225, end: 20220225
  2. CEFTRIAXONE SODIUM [Concomitant]
     Active Substance: CEFTRIAXONE SODIUM
     Dosage: UNK
     Dates: start: 20220222, end: 20220228
  3. METRONIDAZOLE [Concomitant]
     Active Substance: METRONIDAZOLE
     Dosage: UNK
     Dates: start: 20220222, end: 20220301
  4. LUNESTA TABLETS [Concomitant]
     Dosage: UNK
     Dates: start: 20220211
  5. MOSAPRIDE CITRATE [Concomitant]
     Active Substance: MOSAPRIDE CITRATE
     Dosage: UNK
     Dates: start: 20220211
  6. CAMOSTAT MESILATE TABLET [Concomitant]
     Dosage: UNK
     Dates: start: 20220211
  7. MIYA-BM [Concomitant]
     Active Substance: CLOSTRIDIUM BUTYRICUM SPORES STRAIN M-55
     Dosage: UNK
     Dates: start: 20220211
  8. ALLOID G [Concomitant]
     Active Substance: SODIUM ALGINATE
     Dosage: UNK
     Dates: start: 20220211
  9. VONOPRAZAN FUMARATE [Concomitant]
     Active Substance: VONOPRAZAN FUMARATE
     Dosage: UNK
     Dates: start: 20220211
  10. TRAZENTA TABLETS [Concomitant]
     Dosage: UNK
     Dates: start: 20220211
  11. RESLIN TABLETS [Concomitant]
     Dosage: UNK
     Dates: start: 20220211
  12. BELSOMRA [Concomitant]
     Active Substance: SUVOREXANT
     Dosage: UNK
     Dates: start: 20220211

REACTIONS (8)
  - Pruritus [Recovered/Resolved]
  - Infusion related reaction [Recovered/Resolved]
  - Erythema [Recovered/Resolved]
  - Rash [Recovered/Resolved]
  - Induration [Recovered/Resolved]
  - Peripheral swelling [Recovered/Resolved]
  - Hot flush [Recovered/Resolved]
  - Urticaria [Recovered/Resolved]

NARRATIVE: CASE EVENT DATE: 20220225
